FAERS Safety Report 4606529-5 (Version None)
Quarter: 2005Q2

REPORT INFORMATION
  Report Type: 
  Country: None (occurrence: None)
  Receive Date: 20050223
  Receipt Date: 20040921
  Transmission Date: 20051028
  Serious: Yes (Other)
  Sender: FDA-Public Use
  Company Number: WAES0409USA01850

PATIENT
  Age: 91 Year
  Sex: Male

DRUGS (7)
  1. ZOCOR [Suspect]
     Dosage: 20 MG/DAILY/PO
     Route: 048
     Dates: start: 20031109
  2. COREG [Concomitant]
  3. IMDUR [Concomitant]
  4. LASIX [Concomitant]
  5. PLAVIX [Concomitant]
  6. ALLOPURINOL [Concomitant]
  7. FERROUS SULFATE TAB [Concomitant]

REACTIONS (2)
  - RENAL FAILURE ACUTE [None]
  - RHABDOMYOLYSIS [None]
